FAERS Safety Report 13739983 (Version 1)
Quarter: 2017Q3

REPORT INFORMATION
  Report Type: Spontaneous
  Country: NL (occurrence: NL)
  Receive Date: 20170711
  Receipt Date: 20170711
  Transmission Date: 20171127
  Serious: Yes (Hospitalization)
  Sender: FDA-Public Use
  Company Number: NL-AUROBINDO-AUR-APL-2012-01431

PATIENT
  Age: 44 Year
  Sex: Male

DRUGS (5)
  1. QUETIAPINE AUROBINDO FILMOMHULDE TABLETTEN 25MG [Suspect]
     Active Substance: QUETIAPINE
     Indication: ANXIETY
     Dosage: 50 MG,ONCE A DAY,
     Route: 065
  2. DEXAMETHASONE. [Concomitant]
     Active Substance: DEXAMETHASONE
     Indication: PRODUCT USED FOR UNKNOWN INDICATION
     Dosage: UNK UNK,UNK,,3-DAY REGIMEN (125, 80, 80 MG).
     Route: 065
  3. APREPITANT. [Interacting]
     Active Substance: APREPITANT
     Indication: ANTIEMETIC SUPPORTIVE CARE
     Dosage: UNK UNK,UNK,,3-DAY REGIMEN (125,80,80 MG)
     Route: 065
  4. CISPLATIN. [Concomitant]
     Active Substance: CISPLATIN
     Indication: PRODUCT USED FOR UNKNOWN INDICATION
     Dosage: 100 MG/M2,EVERY 3 WEEKS,
     Route: 065
  5. ONDANSETRON [Concomitant]
     Active Substance: ONDANSETRON
     Indication: PRODUCT USED FOR UNKNOWN INDICATION
     Dosage: UNK UNK,UNK,,3-DAY REGIMEN (125, 80, 80 MG).
     Route: 065

REACTIONS (4)
  - Drug interaction [Recovered/Resolved]
  - Drug level increased [Recovered/Resolved]
  - Dehydration [Recovered/Resolved]
  - Somnolence [Recovered/Resolved]
